FAERS Safety Report 11442399 (Version 2)
Quarter: 2017Q2

REPORT INFORMATION
  Report Type: Report from Study
  Country: US (occurrence: US)
  Receive Date: 20150901
  Receipt Date: 20170421
  Transmission Date: 20170829
  Serious: Yes (Hospitalization)
  Sender: FDA-Public Use
  Company Number: US-ACTELION-A-US2015-123231

PATIENT
  Age: 58 Year
  Sex: Female

DRUGS (12)
  1. NORVASC [Concomitant]
     Active Substance: AMLODIPINE BESYLATE
  2. COLACE [Concomitant]
     Active Substance: DOCUSATE SODIUM
  3. TRICOR [Concomitant]
     Active Substance: FENOFIBRATE
  4. MULTIVITAMINS W/MINERALS [Concomitant]
     Active Substance: MINERALS\VITAMINS
  5. REMODULIN [Concomitant]
     Active Substance: TREPROSTINIL
  6. PREDNISONE. [Concomitant]
     Active Substance: PREDNISONE
  7. LASIX [Concomitant]
     Active Substance: FUROSEMIDE
  8. PEPCID [Concomitant]
     Active Substance: FAMOTIDINE
  9. SYNTHROID [Concomitant]
     Active Substance: LEVOTHYROXINE SODIUM
  10. REVATIO [Concomitant]
     Active Substance: SILDENAFIL CITRATE
  11. COUMADIN [Concomitant]
     Active Substance: WARFARIN SODIUM
  12. TRACLEER [Suspect]
     Active Substance: BOSENTAN
     Indication: PULMONARY ARTERIAL HYPERTENSION
     Dosage: 125 UNK, BID
     Route: 048
     Dates: start: 20060517

REACTIONS (4)
  - Hyponatraemia [Unknown]
  - Confusional state [Unknown]
  - Chronic obstructive pulmonary disease [Recovering/Resolving]
  - Dyspnoea [Recovering/Resolving]

NARRATIVE: CASE EVENT DATE: 20150820
